FAERS Safety Report 15049466 (Version 1)
Quarter: 2018Q2

REPORT INFORMATION
  Report Type: Spontaneous
  Country: US (occurrence: US)
  Receive Date: 20180622
  Receipt Date: 20180622
  Transmission Date: 20180711
  Serious: Yes (Hospitalization)
  Sender: FDA-Public Use
  Company Number: US-BRAINTREE LABORATORIES-180307-1

PATIENT
  Age: 79 Year
  Sex: Male
  Weight: 95.25 kg

DRUGS (1)
  1. SUPREP BOWEL PREP [Suspect]
     Active Substance: MAGNESIUM SULFATE\POTASSIUM SULFATE\SODIUM SULFATE
     Indication: COLONOSCOPY
     Dosage: 2 X 6 OZ. BOTTLE
     Route: 048
     Dates: start: 20180530, end: 20180530

REACTIONS (3)
  - Urinary tract infection [None]
  - Kidney infection [None]
  - Nephrolithiasis [None]

NARRATIVE: CASE EVENT DATE: 20180601
